FAERS Safety Report 7471610-2 (Version None)
Quarter: 2011Q2

REPORT INFORMATION
  Report Type: 
  Country: None (occurrence: None)
  Receive Date: 20110511
  Receipt Date: 20110329
  Transmission Date: 20111010
  Serious: No
  Sender: FDA-Public Use
  Company Number: US-BAYER-201039828NA

PATIENT
  Age: 23 Year
  Sex: Female

DRUGS (5)
  1. DROSPIRENONE AND ETHINYL ESTRADIOL [Suspect]
     Indication: ACNE
  2. YAZ [Suspect]
     Indication: ACNE
  3. VALIUM [Concomitant]
  4. OMEPRAZOLE [Concomitant]
  5. YASMIN [Suspect]
     Indication: ACNE

REACTIONS (1)
  - INJURY [None]
